FAERS Safety Report 8245869-8 (Version None)
Quarter: 2012Q1

REPORT INFORMATION
  Report Type: 
  Country: None (occurrence: None)
  Receive Date: 20120328
  Receipt Date: 20120328
  Transmission Date: 20120608
  Serious: Yes (Disabling)
  Sender: FDA-Public Use
  Company Number: None

PATIENT
  Age: 32 Year
  Sex: Male
  Weight: 67.1324 kg

DRUGS (2)
  1. CIPROFLOXACIN HCL [Suspect]
     Indication: SMALL INTESTINAL BACTERIAL OVERGROWTH
     Dosage: 500 MG B.I.D. ORAL
     Route: 048
     Dates: start: 20100823, end: 20100831
  2. CELESTONE [Suspect]
     Indication: MUSCLE STRAIN
     Dosage: ONCE INTRAARTICULAR
     Route: 014
     Dates: start: 20100824

REACTIONS (12)
  - FOOD ALLERGY [None]
  - RASH [None]
  - TENDONITIS [None]
  - DRY EYE [None]
  - FATIGUE [None]
  - TENDON DISORDER [None]
  - ARTHRALGIA [None]
  - MYALGIA [None]
  - HYPOGONADISM MALE [None]
  - ALOPECIA [None]
  - CILIARY BODY DISORDER [None]
  - VISUAL FIELD DEFECT [None]
